FAERS Safety Report 21865962 (Version 2)
Quarter: 2023Q4

REPORT INFORMATION
  Report Type: Spontaneous
  Country: CA (occurrence: CA)
  Receive Date: 20230116
  Receipt Date: 20231106
  Transmission Date: 20240110
  Serious: Yes (Hospitalization, Other)
  Sender: FDA-Public Use
  Company Number: CA-BAXTER-2023BAX009997

PATIENT
  Age: 54 Year
  Sex: Female

DRUGS (143)
  1. SODIUM BICARBONATE [Suspect]
     Active Substance: SODIUM BICARBONATE
     Indication: Product used for unknown indication
     Dosage: DOSAGE FORM: NOT SPECIFIED
     Route: 065
  2. SODIUM CHLORIDE [Suspect]
     Active Substance: SODIUM CHLORIDE
     Indication: Product used for unknown indication
     Dosage: DOSAGE FORM: NOT SPECIFIED
     Route: 065
  3. SODIUM CHLORIDE [Suspect]
     Active Substance: SODIUM CHLORIDE
     Dosage: 50.0 MICROGRAM 1 EVERY 12 HOURS (DOSAGE FORM: NOT SPECIFIED)
     Route: 065
  4. ACYCLOVIR [Suspect]
     Active Substance: ACYCLOVIR
     Indication: Product used for unknown indication
     Dosage: DOSAGE FORM: NOT SPECFIED
     Route: 065
  5. ACYCLOVIR [Suspect]
     Active Substance: ACYCLOVIR
     Dosage: (DOSAGE FORM: NOT SPECIFIED)
     Route: 016
  6. ACYCLOVIR SODIUM [Suspect]
     Active Substance: ACYCLOVIR SODIUM
     Indication: Product used for unknown indication
     Dosage: AT AN UNSPECIFIED DOSE AND FREQUENCY (DOSAGE FORM: NOT SPECIFIED)
     Route: 065
  7. APIXABAN [Suspect]
     Active Substance: APIXABAN
     Indication: Product used for unknown indication
     Dosage: 3 DOSAGE FORM, 1 EVERY 1 DAYS
     Route: 065
  8. APIXABAN [Suspect]
     Active Substance: APIXABAN
     Dosage: 1.0 DOSAGE FORMS 1 EVERY 1 DAYS
     Route: 065
  9. APIXABAN [Suspect]
     Active Substance: APIXABAN
     Dosage: UNK
     Route: 016
  10. TRAMADOL HYDROCHLORIDE [Suspect]
     Active Substance: TRAMADOL HYDROCHLORIDE
     Indication: Product used for unknown indication
     Dosage: UNK
     Route: 065
  11. BUDESONIDE [Suspect]
     Active Substance: BUDESONIDE
     Indication: Product used for unknown indication
     Dosage: 1 DOSAGE FORM, 3 EVERY 1 DAYS
     Route: 045
  12. BUDESONIDE [Suspect]
     Active Substance: BUDESONIDE
     Dosage: 3 DOSAGE FORM, 1 EVERY 1 DAYS
     Route: 045
  13. BUDESONIDE [Suspect]
     Active Substance: BUDESONIDE
     Dosage: 3 EVERY 1 DAYS
     Route: 045
  14. BUDESONIDE [Suspect]
     Active Substance: BUDESONIDE
     Dosage: 3 DOSAGE FORM, 1 EVERY 8 HOURS
     Route: 045
  15. BUDESONIDE\FORMOTEROL [Suspect]
     Active Substance: BUDESONIDE\FORMOTEROL
     Indication: Product used for unknown indication
     Dosage: UNK
     Route: 065
  16. BUDESONIDE\FORMOTEROL [Suspect]
     Active Substance: BUDESONIDE\FORMOTEROL
     Dosage: 3.0 DOSAGE FORMS
     Route: 065
  17. BUDESONIDE\FORMOTEROL FUMARATE [Suspect]
     Active Substance: BUDESONIDE\FORMOTEROL FUMARATE
     Indication: Product used for unknown indication
     Dosage: 1 DOSAGE FORM, 3 EVERY 1 DAYS
     Route: 065
  18. BUDESONIDE\FORMOTEROL FUMARATE [Suspect]
     Active Substance: BUDESONIDE\FORMOTEROL FUMARATE
     Dosage: 3 DOSAGE FORM
     Route: 065
  19. BUDESONIDE\FORMOTEROL FUMARATE [Suspect]
     Active Substance: BUDESONIDE\FORMOTEROL FUMARATE
     Dosage: 3.0 DOSAGE FORMS 1 EVERY 1 DAYS
     Route: 065
  20. BUDESONIDE\FORMOTEROL FUMARATE [Suspect]
     Active Substance: BUDESONIDE\FORMOTEROL FUMARATE
     Dosage: 3.0 DOSAGE FORMS 1 EVERY 1 DAYS
     Route: 065
  21. BUDESONIDE\FORMOTEROL FUMARATE [Suspect]
     Active Substance: BUDESONIDE\FORMOTEROL FUMARATE
     Dosage: 1.0 DOSAGE FORMS 1 EVERY 8 HOURS
     Route: 065
  22. BUDESONIDE\FORMOTEROL FUMARATE [Suspect]
     Active Substance: BUDESONIDE\FORMOTEROL FUMARATE
     Indication: Product used for unknown indication
     Dosage: 3 DOSAGE FORM, 1 EVERY 1 DAYS
     Route: 065
  23. BUDESONIDE\FORMOTEROL FUMARATE [Suspect]
     Active Substance: BUDESONIDE\FORMOTEROL FUMARATE
     Dosage: 3 DOSAGE FORM
     Route: 065
  24. BUDESONIDE\FORMOTEROL FUMARATE [Suspect]
     Active Substance: BUDESONIDE\FORMOTEROL FUMARATE
     Dosage: 1 DOSAGE FORM, 1 EVERY 1 DAYS
     Route: 065
  25. BUDESONIDE\FORMOTEROL FUMARATE [Suspect]
     Active Substance: BUDESONIDE\FORMOTEROL FUMARATE
     Dosage: 1 DOSAGE FORM, 3 EVERY 1 DAYS
     Route: 045
  26. BUDESONIDE\FORMOTEROL FUMARATE [Suspect]
     Active Substance: BUDESONIDE\FORMOTEROL FUMARATE
     Dosage: 3 DOSAGE FORM, 1 EVERY 1 DAYS
     Route: 045
  27. BUDESONIDE\FORMOTEROL FUMARATE [Suspect]
     Active Substance: BUDESONIDE\FORMOTEROL FUMARATE
     Dosage: 1.0 DOSAGE FORMS 1 EVERY 8 HOURS
     Route: 065
  28. BUPROPION [Suspect]
     Active Substance: BUPROPION
     Indication: Product used for unknown indication
     Dosage: UNK
     Route: 065
  29. BUPROPION HYDROBROMIDE [Suspect]
     Active Substance: BUPROPION HYDROBROMIDE
     Indication: Product used for unknown indication
     Dosage: UNK
     Route: 065
  30. CLONAZEPAM [Suspect]
     Active Substance: CLONAZEPAM
     Indication: Product used for unknown indication
     Dosage: UNK
     Route: 048
  31. CYANOCOBALAMIN [Suspect]
     Active Substance: CYANOCOBALAMIN
     Indication: Product used for unknown indication
     Dosage: DOSAGE FORM: NOT SPECIFIED
     Route: 065
  32. ELIQUIS [Suspect]
     Active Substance: APIXABAN
     Indication: Product used for unknown indication
     Dosage: UNK
     Route: 065
  33. ERGOCALCIFEROL [Suspect]
     Active Substance: ERGOCALCIFEROL
     Indication: Product used for unknown indication
     Dosage: UNK
     Route: 065
  34. ERGOCALCIFEROL [Suspect]
     Active Substance: ERGOCALCIFEROL
     Dosage: 50.0 MILLIGRAM 1 EVERY 12 HOURS
     Route: 065
  35. ESOMEPRAZOLE [Suspect]
     Active Substance: ESOMEPRAZOLE
     Indication: Product used for unknown indication
     Dosage: DOSAGE FORM: NOT SPECIFIED
     Route: 065
  36. ESOMEPRAZOLE MAGNESIUM [Suspect]
     Active Substance: ESOMEPRAZOLE\ESOMEPRAZOLE MAGNESIUM\ESOMEPRAZOLE MAGNESIUM DIHYDRATE
     Indication: Product used for unknown indication
     Dosage: UNK
     Route: 065
  37. FORMOTEROL [Suspect]
     Active Substance: FORMOTEROL
     Indication: Product used for unknown indication
     Dosage: 3 EVERY 1 DAYS
     Route: 065
  38. FORMOTEROL [Suspect]
     Active Substance: FORMOTEROL
     Dosage: 3.0 DOSAGE FORMS 1 EVERY 1 DAYS
     Route: 065
  39. FORMOTEROL [Suspect]
     Active Substance: FORMOTEROL
     Dosage: UNK
     Route: 065
  40. HYALURONATE SODIUM [Suspect]
     Active Substance: HYALURONATE SODIUM
     Indication: Product used for unknown indication
     Dosage: DOSAGE FORM: NOT SPECIFIED
     Route: 065
  41. LEVOTHYROXINE SODIUM [Suspect]
     Active Substance: LEVOTHYROXINE SODIUM
     Indication: Product used for unknown indication
     Dosage: DOSAGE FORM: NOT SPECIFIED
     Route: 048
  42. LEVOTHYROXINE SODIUM [Suspect]
     Active Substance: LEVOTHYROXINE SODIUM
     Dosage: DOSAGE FORM: NOT SPECIFIED
     Route: 065
  43. LIOTHYRONINE SODIUM [Suspect]
     Active Substance: LIOTHYRONINE SODIUM
     Indication: Product used for unknown indication
     Dosage: UNK
     Route: 065
  44. LIOTHYRONINE SODIUM [Suspect]
     Active Substance: LIOTHYRONINE SODIUM
     Dosage: UNK
     Route: 048
  45. METOPROLOL [Suspect]
     Active Substance: METOPROLOL
     Indication: Product used for unknown indication
     Dosage: UNK
     Route: 065
  46. METOPROLOL FUMARATE [Suspect]
     Active Substance: METOPROLOL FUMARATE
     Indication: Product used for unknown indication
     Dosage: UNK
     Route: 065
  47. METOPROLOL TARTRATE [Suspect]
     Active Substance: METOPROLOL TARTRATE
     Indication: Product used for unknown indication
     Route: 065
  48. MOMETASONE [Suspect]
     Active Substance: MOMETASONE
     Indication: Product used for unknown indication
     Dosage: 1 DOSAGE FORM
     Route: 065
  49. MOMETASONE [Suspect]
     Active Substance: MOMETASONE
     Dosage: 50 MICROGRAM, 1 EVERY 1 DAYS
     Route: 045
  50. MOMETASONE [Suspect]
     Active Substance: MOMETASONE
     Dosage: 50 MILLIGRAM, 2 EVERY 1 DAYS
     Route: 045
  51. MOMETASONE [Suspect]
     Active Substance: MOMETASONE
     Dosage: 50 MILLIGRAM, 1 EVERY 1 DAYS
     Route: 065
  52. MOMETASONE [Suspect]
     Active Substance: MOMETASONE
     Dosage: 50.0 MILLIGRAM
     Route: 065
  53. MOMETASONE [Suspect]
     Active Substance: MOMETASONE
     Dosage: 50.0 MICROGRAM 1 EVERY 12 HOURS
     Route: 045
  54. MOMETASONE [Suspect]
     Active Substance: MOMETASONE
     Dosage: 50.0 MILLIGRAM 1 EVERY 12 HOURS
     Route: 045
  55. MOMETASONE [Suspect]
     Active Substance: MOMETASONE
     Dosage: 50.0 MICROGRAM 2 EVERY 1 DAYS
     Route: 045
  56. MOMETASONE FUROATE [Suspect]
     Active Substance: MOMETASONE FUROATE
     Indication: Product used for unknown indication
     Dosage: DOSAG FORM: NOT SPECIFIED
     Route: 065
  57. MOMETASONE FUROATE [Suspect]
     Active Substance: MOMETASONE FUROATE
     Dosage: 5.0 MILLIGRAM 1 EVERY 12 HOURS
     Route: 065
  58. MOMETASONE FUROATE [Suspect]
     Active Substance: MOMETASONE FUROATE
     Dosage: (DOSAGE FORM: NOT SPECIFIED), 50.0 MICROGRAM 1 EVERY 12 HOURS
     Route: 045
  59. MOMETASONE FUROATE [Suspect]
     Active Substance: MOMETASONE FUROATE
     Dosage: 100.0 MILLIGRAM 1 EVERY 1 DAYS
     Route: 065
  60. MOMETASONE FUROATE [Suspect]
     Active Substance: MOMETASONE FUROATE
     Dosage: 50.0 MILLIGRAM 1 EVERY 12 HOURS
     Route: 045
  61. MOMETASONE FUROATE [Suspect]
     Active Substance: MOMETASONE FUROATE
     Dosage: 50.0 MICROGRAM 1 EVERY 1 DAYS
     Route: 065
  62. MOMETASONE FUROATE [Suspect]
     Active Substance: MOMETASONE FUROATE
     Dosage: 50.0 MICROGRAM
     Route: 065
  63. MOMETASONE FUROATE [Suspect]
     Active Substance: MOMETASONE FUROATE
     Dosage: 50.0 MILLIGRAM 1 EVERY 1 DAYS
     Route: 065
  64. MOMETASONE FUROATE [Suspect]
     Active Substance: MOMETASONE FUROATE
     Dosage: 50.0 MICROGRAM
     Route: 045
  65. MOMETASONE FUROATE [Suspect]
     Active Substance: MOMETASONE FUROATE
     Dosage: 50.0 MILLIGRAM
     Route: 065
  66. MOMETASONE FUROATE [Suspect]
     Active Substance: MOMETASONE FUROATE
     Dosage: (DOSAGE FORM: NOT SPECIFIED), 50.0 MILLIGRAM
     Route: 065
  67. MONTELUKAST SODIUM [Suspect]
     Active Substance: MONTELUKAST SODIUM
     Indication: Product used for unknown indication
     Dosage: UNK
     Route: 065
  68. NASONEX [Suspect]
     Active Substance: MOMETASONE FUROATE
     Indication: Product used for unknown indication
     Dosage: DOSAGE FORM: SPRAY, METERED DOSE
     Route: 065
  69. PERINDOPRIL [Suspect]
     Active Substance: PERINDOPRIL
     Indication: Product used for unknown indication
     Dosage: UNK
     Route: 065
  70. PERINDOPRIL [Suspect]
     Active Substance: PERINDOPRIL
     Dosage: UNK
     Route: 016
  71. PERINDOPRIL ARGININE [Suspect]
     Active Substance: PERINDOPRIL ARGININE
     Indication: Product used for unknown indication
     Dosage: UNK
     Route: 065
  72. PERINDOPRIL ERBUMINE [Suspect]
     Active Substance: PERINDOPRIL ERBUMINE
     Indication: Product used for unknown indication
     Dosage: UNK
     Route: 065
  73. PREDNISONE [Suspect]
     Active Substance: PREDNISONE
     Indication: Product used for unknown indication
     Dosage: DOSAGE FORM: NOT SPECIFIED
     Route: 065
  74. DIETARY SUPPLEMENT [Suspect]
     Active Substance: DIETARY SUPPLEMENT
     Indication: Product used for unknown indication
     Dosage: 1000 MILLIGRAM
     Route: 048
  75. DIETARY SUPPLEMENT [Suspect]
     Active Substance: DIETARY SUPPLEMENT
     Dosage: 1000 MILLIGRAM
     Route: 065
  76. ALBUTEROL [Suspect]
     Active Substance: ALBUTEROL
     Indication: Product used for unknown indication
     Dosage: DOSAGE FORM: NOT SPECIFIED
     Route: 065
  77. ALBUTEROL SULFATE [Suspect]
     Active Substance: ALBUTEROL SULFATE
     Indication: Product used for unknown indication
     Dosage: UNK
     Route: 065
  78. ALBUTEROL SULFATE [Suspect]
     Active Substance: ALBUTEROL SULFATE
     Indication: Asthma
  79. SODIUM CHLORIDE [Suspect]
     Active Substance: SODIUM CHLORIDE
     Indication: Product used for unknown indication
     Dosage: UNK
     Route: 065
  80. SODIUM CHLORIDE [Suspect]
     Active Substance: SODIUM CHLORIDE
     Dosage: UNK
     Route: 048
  81. SPIRONOLACTONE [Suspect]
     Active Substance: SPIRONOLACTONE
     Indication: Product used for unknown indication
     Dosage: UNK
     Route: 048
  82. TRAMADOL [Suspect]
     Active Substance: TRAMADOL\TRAMADOL HYDROCHLORIDE
     Indication: Product used for unknown indication
     Dosage: 1.0 DOSAGE FORMS
     Route: 065
  83. TRAMADOL [Suspect]
     Active Substance: TRAMADOL\TRAMADOL HYDROCHLORIDE
     Dosage: 1.0 DOSAGE FORMS, 1 EVERY 8 HOURS
     Route: 065
  84. TRAMADOL [Suspect]
     Active Substance: TRAMADOL\TRAMADOL HYDROCHLORIDE
     Dosage: 50.0 MILLIGRAM
     Route: 065
  85. TRAMADOL HYDROCHLORIDE [Suspect]
     Active Substance: TRAMADOL HYDROCHLORIDE
     Indication: Product used for unknown indication
     Dosage: DOSAGE FORM: NOT SPECIFIED
     Route: 065
  86. TRAMADOL HYDROCHLORIDE [Suspect]
     Active Substance: TRAMADOL HYDROCHLORIDE
     Dosage: (DOSAGE FORM: NOT SPECIFIED), 1.0 DOSAGE FORMS
     Route: 065
  87. TRAMADOL HYDROCHLORIDE [Suspect]
     Active Substance: TRAMADOL HYDROCHLORIDE
     Dosage: 3.0 DOSAGE FORMS 1 EVERY 8 HOURS
     Route: 065
  88. TRAMADOL HYDROCHLORIDE [Suspect]
     Active Substance: TRAMADOL HYDROCHLORIDE
     Dosage: 50.0 MILLIGRAM
     Route: 065
  89. TRAMADOL HYDROCHLORIDE [Suspect]
     Active Substance: TRAMADOL HYDROCHLORIDE
     Dosage: 1.0 DOSAGE FORMS
     Route: 065
  90. TRAZODONE [Suspect]
     Active Substance: TRAZODONE HYDROCHLORIDE
     Indication: Product used for unknown indication
     Dosage: UNK
     Route: 065
  91. TRAZODONE HYDROCHLORIDE [Suspect]
     Active Substance: TRAZODONE HYDROCHLORIDE
     Indication: Product used for unknown indication
     Dosage: UNK
     Route: 065
  92. ULTRAM [Suspect]
     Active Substance: TRAMADOL HYDROCHLORIDE
     Indication: Product used for unknown indication
     Dosage: 50 MILLIGRAM
     Route: 065
  93. ULTRAM [Suspect]
     Active Substance: TRAMADOL HYDROCHLORIDE
     Dosage: 1 DOSAGE FORM, 3 EVERY 1 DAYS
     Route: 065
  94. ULTRAM [Suspect]
     Active Substance: TRAMADOL HYDROCHLORIDE
     Dosage: 1.0 DOSAGE FORMS 1 EVERY 8 HOURS
     Route: 065
  95. VITAMIN B12 [Suspect]
     Active Substance: CYANOCOBALAMIN
     Indication: Product used for unknown indication
     Dosage: DOSAGE FORM: NOT SPECIFIED
     Route: 065
  96. CYANOCOBALAMIN\FOLIC ACID [Suspect]
     Active Substance: CYANOCOBALAMIN\FOLIC ACID
     Indication: Product used for unknown indication
     Dosage: DOSAGE FORM: LOZENGE
     Route: 065
  97. VITAMIN C [Suspect]
     Active Substance: ASCORBIC ACID
     Indication: Product used for unknown indication
     Dosage: 1000.0 MILLIGRAM
     Route: 065
  98. VITAMIN C [Suspect]
     Active Substance: ASCORBIC ACID
     Dosage: 50.0 MILLIGRAM 1 EVERY 12 HOURS
     Route: 065
  99. VITAMIN C [Suspect]
     Active Substance: ASCORBIC ACID
     Dosage: 100.0 MILLIGRAM
     Route: 065
  100. VITAMIN D [Suspect]
     Active Substance: VITAMIN D NOS
     Indication: Product used for unknown indication
     Dosage: DOSAGE FORM: NOT SPECIFIED
     Route: 065
  101. VITAMIN D3 [Suspect]
     Active Substance: CHOLECALCIFEROL
     Indication: Product used for unknown indication
     Dosage: UNK
     Route: 065
  102. APIXABAN [Suspect]
     Active Substance: APIXABAN
     Indication: Product used for unknown indication
     Dosage: 3.0 DOSAGE FORMS 1 EVERY 1 DAYS
     Route: 065
  103. APIXABAN [Suspect]
     Active Substance: APIXABAN
     Dosage: UNK
     Route: 016
  104. APIXABAN [Suspect]
     Active Substance: APIXABAN
     Dosage: UNK
     Route: 065
  105. BUDESONIDE [Suspect]
     Active Substance: BUDESONIDE
     Indication: Product used for unknown indication
     Dosage: 3.0 DOSAGE FORMS 1 EVERY 1 DAYS
     Route: 045
  106. BUDESONIDE [Suspect]
     Active Substance: BUDESONIDE
     Dosage: 1.0 DOSAGE FORMS 1 EVERY 8 HOURS (DOSAGE FORM: NOT SPECIFIED)
     Route: 045
  107. BUDESONIDE [Suspect]
     Active Substance: BUDESONIDE
     Dosage: UNK
     Route: 045
  108. BUPROPION HYDROCHLORIDE [Suspect]
     Active Substance: BUPROPION HYDROCHLORIDE
     Indication: Product used for unknown indication
     Route: 065
  109. BUPROPION HYDROCHLORIDE [Suspect]
     Active Substance: BUPROPION HYDROCHLORIDE
     Dosage: UNK
     Route: 065
  110. COBAMAMIDE [Suspect]
     Active Substance: COBAMAMIDE
     Indication: Product used for unknown indication
     Route: 065
  111. ERGOCALCIFEROL [Suspect]
     Active Substance: ERGOCALCIFEROL
     Indication: Product used for unknown indication
     Dosage: (DOSAGE FORM: NOT SPECIFIED)
     Route: 065
  112. FORMOTEROL FUMARATE [Suspect]
     Active Substance: FORMOTEROL FUMARATE
     Indication: Product used for unknown indication
     Dosage: 1 EVERY 8 HOURS
     Route: 065
  113. FORMOTEROL FUMARATE [Suspect]
     Active Substance: FORMOTEROL FUMARATE
     Dosage: UNK
     Route: 065
  114. FORMOTEROL FUMARATE [Suspect]
     Active Substance: FORMOTEROL FUMARATE
     Dosage: 3.0 DOSAGE FORMS
     Route: 065
  115. HYALURONATE SODIUM [Suspect]
     Active Substance: HYALURONATE SODIUM
     Indication: Product used for unknown indication
     Route: 065
  116. LIOTHYRONINE SODIUM [Suspect]
     Active Substance: LIOTHYRONINE SODIUM
     Indication: Product used for unknown indication
     Route: 065
  117. POLYETHYLENE GLYCOL\PROPYLENE GLYCOL [Suspect]
     Active Substance: POLYETHYLENE GLYCOL\PROPYLENE GLYCOL
     Indication: Product used for unknown indication
     Route: 065
  118. MONTELUKAST SODIUM [Suspect]
     Active Substance: MONTELUKAST SODIUM
     Indication: Product used for unknown indication
     Route: 016
  119. DIETARY SUPPLEMENT\HERBALS [Suspect]
     Active Substance: DIETARY SUPPLEMENT\HERBALS
     Indication: Product used for unknown indication
     Dosage: DOSAGE FORM - GLOBULES, 1000.0 MILLIGRAM
     Route: 048
  120. DIETARY SUPPLEMENT\HERBALS [Suspect]
     Active Substance: DIETARY SUPPLEMENT\HERBALS
     Dosage: DOSAGE FORM - GLOBULES ORAL, 100.0 MILLIGRAM
     Route: 048
  121. SYMBICORT [Suspect]
     Active Substance: BUDESONIDE\FORMOTEROL FUMARATE DIHYDRATE
     Indication: Product used for unknown indication
     Dosage: (DOSAGE FORM: NOT SPECIFIED)
     Route: 065
  122. TRAMADOL [Suspect]
     Active Substance: TRAMADOL\TRAMADOL HYDROCHLORIDE
     Indication: Product used for unknown indication
     Dosage: 50.0 MILLIGRAM
     Route: 065
  123. TRAMADOL [Suspect]
     Active Substance: TRAMADOL\TRAMADOL HYDROCHLORIDE
     Dosage: 1.0 DOSAGE FORMS 1 EVERY 8 HOURS
     Route: 065
  124. TRAMADOL [Suspect]
     Active Substance: TRAMADOL\TRAMADOL HYDROCHLORIDE
     Dosage: 1.0 DOSAGE FORMS
     Route: 065
  125. LIOTHYRONINE [Suspect]
     Active Substance: LIOTHYRONINE
     Indication: Product used for unknown indication
     Route: 065
  126. METOPROLOL [Suspect]
     Active Substance: METOPROLOL
     Indication: Product used for unknown indication
     Route: 065
  127. MONTELUKAST [Suspect]
     Active Substance: MONTELUKAST SODIUM
     Indication: Product used for unknown indication
     Dosage: (DOSAGE FORM: NOT SPECIFIED)
     Route: 016
  128. PERINDOPRIL ARGININE [Suspect]
     Active Substance: PERINDOPRIL ARGININE
     Indication: Product used for unknown indication
     Route: 065
  129. TRAZODONE HYDROCHLORIDE [Suspect]
     Active Substance: TRAZODONE HYDROCHLORIDE
     Indication: Product used for unknown indication
     Route: 065
  130. DIETARY SUPPLEMENT [Suspect]
     Active Substance: DIETARY SUPPLEMENT
     Indication: Product used for unknown indication
     Dosage: 1000.0 MILLIGRAM
     Route: 065
  131. NASONEX [Suspect]
     Active Substance: MOMETASONE FUROATE
     Indication: Product used for unknown indication
     Route: 065
  132. SEA WATER [Suspect]
     Active Substance: SEA WATER
     Indication: Product used for unknown indication
     Route: 065
  133. SODIUM BICARBONATE\SODIUM CHLORIDE [Suspect]
     Active Substance: SODIUM BICARBONATE\SODIUM CHLORIDE
     Indication: Product used for unknown indication
     Dosage: 50 MILLIGRAM, 1 EVERY 12 HOURS
     Route: 065
  134. SODIUM BICARBONATE\SODIUM CHLORIDE [Suspect]
     Active Substance: SODIUM BICARBONATE\SODIUM CHLORIDE
     Dosage: 50 MICROGRAM, 1 EVERY 12 HOURS
     Route: 065
  135. SODIUM BICARBONATE\SODIUM CHLORIDE [Suspect]
     Active Substance: SODIUM BICARBONATE\SODIUM CHLORIDE
     Indication: Product used for unknown indication
     Route: 065
  136. VITAMIN C [Suspect]
     Active Substance: ASCORBIC ACID
     Indication: Product used for unknown indication
     Dosage: 1000 MILLIGRAM, 1 EVERY 1 DAYS (DOSAGE FORM: NOT SPECIFIED)
     Route: 065
  137. ACYCLOVIR [Concomitant]
     Active Substance: ACYCLOVIR
     Indication: Product used for unknown indication
     Dosage: (DOSAGE FORM: NOT SPECIFIED)
     Route: 016
  138. BUDESONIDE\FORMOTEROL [Concomitant]
     Active Substance: BUDESONIDE\FORMOTEROL
     Indication: Product used for unknown indication
     Route: 065
  139. BUPROPION HYDROCHLORIDE [Concomitant]
     Active Substance: BUPROPION HYDROCHLORIDE
     Indication: Product used for unknown indication
     Route: 065
  140. ALBUTEROL [Concomitant]
     Active Substance: ALBUTEROL
     Indication: Product used for unknown indication
     Dosage: (DOSAGE FORM: NOT SPECIFIED)
     Route: 065
  141. ALBUTEROL SULFATE [Concomitant]
     Active Substance: ALBUTEROL SULFATE
     Indication: Product used for unknown indication
     Dosage: UNK
     Route: 065
  142. VITAMIN B12 [Concomitant]
     Active Substance: CYANOCOBALAMIN
     Indication: Product used for unknown indication
     Dosage: (DOSAGE FORM: NOT SPECIFIED)
     Route: 065
  143. VENTOLIN [Concomitant]
     Active Substance: ALBUTEROL SULFATE
     Indication: Product used for unknown indication
     Dosage: (DOSAGE FORM: NOT SPECIFIED)
     Route: 065

REACTIONS (32)
  - Adverse event [Recovered/Resolved]
  - Asthma [Recovered/Resolved]
  - Blood test abnormal [Recovered/Resolved]
  - Cardiac disorder [Recovered/Resolved]
  - Carpal tunnel syndrome [Recovered/Resolved]
  - Dyspnoea [Recovered/Resolved]
  - Ejection fraction [Recovered/Resolved]
  - Ejection fraction abnormal [Recovered/Resolved]
  - Fibromyalgia [Recovered/Resolved]
  - Full blood count abnormal [Recovered/Resolved]
  - Gastrooesophageal reflux disease [Recovered/Resolved]
  - Headache [Recovered/Resolved]
  - Hospitalisation [Recovered/Resolved]
  - Hypertension [Recovered/Resolved]
  - Hypothyroidism [Recovered/Resolved]
  - Loss of personal independence in daily activities [Recovered/Resolved]
  - Nephrectomy [Recovered/Resolved]
  - Nephropathy [Recovered/Resolved]
  - Obstructive sleep apnoea syndrome [Recovered/Resolved]
  - Polycystic ovaries [Recovered/Resolved]
  - Renal disorder [Recovered/Resolved]
  - Renal disorder [Recovered/Resolved]
  - Rhinitis allergic [Recovered/Resolved]
  - Sensitisation [Recovered/Resolved]
  - Sleep apnoea syndrome [Recovered/Resolved]
  - Sleep apnoea syndrome [Recovered/Resolved]
  - Sleep disorder due to a general medical condition [Recovered/Resolved]
  - Sleep disorder due to general medical condition, insomnia type [Recovered/Resolved]
  - Therapeutic product effect incomplete [Recovered/Resolved]
  - Intentional product use issue [Recovered/Resolved]
  - Wheezing [Recovered/Resolved]
  - Burning sensation [Recovered/Resolved]
